FAERS Safety Report 23277617 (Version 1)
Quarter: 2023Q4

REPORT INFORMATION
  Report Type: Spontaneous
  Country: US (occurrence: US)
  Receive Date: 20231208
  Receipt Date: 20231208
  Transmission Date: 20240109
  Serious: Yes (Other)
  Sender: FDA-Public Use
  Company Number: US-ENDO-CASE-0048730

PATIENT
  Sex: Female

DRUGS (2)
  1. ENDOCET [Suspect]
     Active Substance: ACETAMINOPHEN\OXYCODONE HYDROCHLORIDE
  2. IBUDONE [Suspect]
     Active Substance: HYDROCODONE BITARTRATE\IBUPROFEN

REACTIONS (10)
  - Dependence [Unknown]
  - Amnesia [Unknown]
  - Vision blurred [Unknown]
  - Mood altered [Unknown]
  - Constipation [Unknown]
  - Headache [Unknown]
  - Anxiety [Unknown]
  - Brain fog [Unknown]
  - Pain in extremity [Unknown]
  - Chest pain [Unknown]
